FAERS Safety Report 10589021 (Version 4)
Quarter: 2015Q2

REPORT INFORMATION
  Report Type: Spontaneous
  Country: IT (occurrence: IT)
  Receive Date: 20141118
  Receipt Date: 20150410
  Transmission Date: 20150821
  Serious: Yes (Hospitalization)
  Sender: FDA-Public Use
  Company Number: IT-ACCORD-027027

PATIENT
  Age: 54 Year
  Sex: Female

DRUGS (7)
  1. CALCIUM LEVOFOLINATE TEVA [Suspect]
     Active Substance: LEVOLEUCOVORIN CALCIUM
     Indication: BREAST CANCER
     Dosage: STRENGTH: 175 MG
     Route: 042
     Dates: start: 20141001
  2. ONDANSETRON B. BRAUN [Concomitant]
     Indication: PREMEDICATION
     Dosage: STRENGTH: 2MG/ML
     Route: 042
     Dates: start: 20100224, end: 20141030
  3. SOLDESAM [Concomitant]
     Active Substance: DEXAMETHASONE
     Indication: PREMEDICATION
     Dosage: STRENGTH: 8MG/ML
     Route: 042
     Dates: start: 20100224, end: 20141030
  4. RANITIDINE ANGENERICO [Concomitant]
     Indication: PREMEDICATION
     Dosage: STRENGTH: 50 MG/5 ML
     Route: 042
     Dates: start: 20110406, end: 20141030
  5. FLUOROURACIL ACCORD [Suspect]
     Active Substance: FLUOROURACIL
     Indication: BREAST CANCER
     Route: 042
     Dates: start: 20141001, end: 20141024
  6. NAVELBINE [Suspect]
     Active Substance: VINORELBINE TARTRATE
     Indication: BREAST CANCER
     Dosage: STRENGTH: 10 MG/ML
     Route: 042
     Dates: start: 20141001
  7. LIMICAN [Concomitant]
     Indication: PREMEDICATION
     Dosage: STRENGTH: 50 MG/2ML
     Route: 042
     Dates: start: 20110406, end: 20141024

REACTIONS (6)
  - Diarrhoea [Recovered/Resolved]
  - Hypocalcaemia [Recovered/Resolved]
  - Hypokalaemia [Recovered/Resolved]
  - Blood creatinine increased [Recovered/Resolved]
  - Anaemia [Recovered/Resolved]
  - Abdominal pain upper [Recovered/Resolved]

NARRATIVE: CASE EVENT DATE: 20141103
